FAERS Safety Report 13434531 (Version 1)
Quarter: 2017Q2

REPORT INFORMATION
  Report Type: Report from Study
  Country: AU (occurrence: AU)
  Receive Date: 20170413
  Receipt Date: 20170413
  Transmission Date: 20170830
  Serious: Yes (Hospitalization, Other)
  Sender: FDA-Public Use
  Company Number: AU-REGENERON PHARMACEUTICALS, INC.-2016-23924

PATIENT

DRUGS (1)
  1. EYLEA [Suspect]
     Active Substance: AFLIBERCEPT
     Indication: NEOVASCULAR AGE-RELATED MACULAR DEGENERATION
     Dosage: 2 MG, LOADING DOSE THEN 6
     Route: 031
     Dates: start: 20160520

REACTIONS (9)
  - Dry eye [Unknown]
  - Cataract operation [Recovered/Resolved]
  - Visual impairment [Unknown]
  - Injection site discomfort [Recovered/Resolved]
  - Headache [Recovered/Resolved]
  - Contusion [Recovered/Resolved]
  - Injection site erythema [Recovering/Resolving]
  - Product use issue [Unknown]
  - Lacrimation increased [Unknown]

NARRATIVE: CASE EVENT DATE: 20160520
